FAERS Safety Report 5156921-8 (Version None)
Quarter: 2006Q4

REPORT INFORMATION
  Report Type: 
  Country: None (occurrence: None)
  Receive Date: 20060918
  Receipt Date: 20060623
  Transmission Date: 20070319
  Serious: Yes (Hospitalization, Other)
  Sender: FDA-Public Use
  Company Number: US-JNJFOC-20060606381

PATIENT
  Sex: Female

DRUGS (1)
  1. ORTHO EVRA [Suspect]
     Dosage: 1 DOSE(S), 3 IN 1 WEEK, TRANSDERMAL
     Route: 062
     Dates: start: 20030601, end: 20040701

REACTIONS (1)
  - PULMONARY EMBOLISM [None]
